FAERS Safety Report 9996432 (Version 1)
Quarter: 2014Q1

REPORT INFORMATION
  Report Type: Spontaneous
  Country: US (occurrence: None)
  Receive Date: 20140218
  Receipt Date: 20140218
  Transmission Date: 20141002
  Serious: Yes (Other)
  Sender: FDA-Public Use
  Company Number: 1000052298

PATIENT
  Age: 85 Year
  Sex: Female

DRUGS (12)
  1. VIIBRYD [Suspect]
     Indication: DEPRESSION
     Dosage: 10 MG (10 MG, 1 IN 1 D), ORAL
     Route: 048
     Dates: start: 20131212
  2. ASPIRIN (ACETYLSALICYLIC ACID) (ACETYLSALICYLIC ACID)? [Concomitant]
  3. WARFARIN (WARFARIN) (WARFARIN) [Concomitant]
  4. METOPROLOL (METOPROLOL) (METOPROLOL) [Concomitant]
  5. DIGOXIN (DIGOXIN) (DIGOXIN) [Concomitant]
  6. IRON (IRON) (TABLETS) (IRON) [Concomitant]
  7. GABAPENTIN (GABAPENTIN) (GABAPENTIN) [Concomitant]
  8. CLONAZEPAM (CLONAZEPAM) (CLONAZEPAM) [Concomitant]
  9. SIMVASTATIN (SIMVASTATIN) (SIMVASTATIN) [Concomitant]
  10. LASIX (FUROSEMIDE) (FUROSEMIDE) [Concomitant]
  11. OMEPRAZOLE (OMEPRAZOLE) (OMEPRAZOLE) [Concomitant]
  12. KLOR-CON (POTASSIUM CHLORIDE) (10 MILLIEQUIVALENTS, TABLES) (POTASSIUM CHLORIDE) [Concomitant]

REACTIONS (1)
  - Nausea [None]
